FAERS Safety Report 5054693-9 (Version None)
Quarter: 2006Q2

REPORT INFORMATION
  Report Type: 
  Country: None (occurrence: None)
  Receive Date: 20060614
  Receipt Date: 20060215
  Transmission Date: 20061013
  Serious: No
  Sender: FDA-Public Use
  Company Number: US200602003534

PATIENT
  Age: 40 Year
  Sex: Male

DRUGS (1)
  1. CIALIS [Suspect]
     Dosage: 20 MG, ORAL
     Route: 048
     Dates: start: 20060211, end: 20060211

REACTIONS (1)
  - LOSS OF CONSCIOUSNESS [None]
